FAERS Safety Report 15844110 (Version 2)
Quarter: 2019Q1

REPORT INFORMATION
  Report Type: Spontaneous
  Country: FR (occurrence: FR)
  Receive Date: 20190118
  Receipt Date: 20190123
  Transmission Date: 20190417
  Serious: Yes (Other)
  Sender: FDA-Public Use
  Company Number: FR-PFIZER INC-2019021254

PATIENT
  Age: 62 Year
  Sex: Female

DRUGS (9)
  1. ADALIMUMAB [Suspect]
     Active Substance: ADALIMUMAB
     Dosage: UNK
     Dates: start: 2009
  2. DAPSONE. [Concomitant]
     Active Substance: DAPSONE
     Dosage: UNK
     Dates: start: 2009, end: 2015
  3. THALIDOMIDE [Concomitant]
     Active Substance: THALIDOMIDE
     Indication: SARCOIDOSIS
     Dosage: UNK
     Dates: start: 2001, end: 2009
  4. HYDROXYCHLOROQUINE [Concomitant]
     Active Substance: HYDROXYCHLOROQUINE
     Indication: SARCOIDOSIS
     Dosage: UNK
     Dates: start: 2001, end: 2009
  5. DOXYCYCLINE. [Concomitant]
     Active Substance: DOXYCYCLINE
     Dosage: UNK
     Dates: start: 2009, end: 2015
  6. MYCOPHENOLATE MOFETIL. [Suspect]
     Active Substance: MYCOPHENOLATE MOFETIL
     Indication: SARCOIDOSIS
     Dosage: UNK
     Route: 065
     Dates: start: 201511
  7. METHOTREXATE SODIUM. [Suspect]
     Active Substance: METHOTREXATE SODIUM
     Dosage: UNK
     Dates: start: 2001, end: 2009
  8. COLCHICINE. [Concomitant]
     Active Substance: COLCHICINE
     Indication: SARCOIDOSIS
     Dosage: UNK
     Dates: start: 2001, end: 2009
  9. DOXYCYCLINE. [Concomitant]
     Active Substance: DOXYCYCLINE
     Indication: SARCOIDOSIS
     Dosage: UNK
     Dates: start: 2001, end: 2009

REACTIONS (3)
  - Condition aggravated [Recovering/Resolving]
  - Product use in unapproved indication [Unknown]
  - Cutaneous tuberculosis [Recovering/Resolving]
